FAERS Safety Report 13034155 (Version 2)
Quarter: 2016Q4

REPORT INFORMATION
  Report Type: Spontaneous
  Country: PL (occurrence: PL)
  Receive Date: 20161216
  Receipt Date: 20161220
  Transmission Date: 20170207
  Serious: Yes (Hospitalization)
  Sender: FDA-Public Use
  Company Number: PL-JNJFOC-20161208783

PATIENT
  Age: 69 Year
  Sex: Male

DRUGS (1)
  1. ZYTIGA [Suspect]
     Active Substance: ABIRATERONE ACETATE
     Indication: PROSTATE CANCER
     Route: 048
     Dates: start: 201408, end: 201601

REACTIONS (3)
  - Enterobacter infection [Recovered/Resolved]
  - Clostridium difficile colitis [Recovered/Resolved]
  - Prostate cancer [Not Recovered/Not Resolved]

NARRATIVE: CASE EVENT DATE: 201411
